FAERS Safety Report 16193005 (Version 1)
Quarter: 2019Q2

REPORT INFORMATION
  Report Type: Spontaneous
  Country: FR (occurrence: FR)
  Receive Date: 20190413
  Receipt Date: 20190413
  Transmission Date: 20190711
  Serious: Yes (Hospitalization)
  Sender: FDA-Public Use
  Company Number: FR-ROCHE-2301024

PATIENT
  Age: 45 Year
  Sex: Female
  Weight: 75.3 kg

DRUGS (6)
  1. PACLITAXEL. [Suspect]
     Active Substance: PACLITAXEL
     Indication: BREAST CANCER
     Route: 041
     Dates: start: 20181130, end: 20190222
  2. LEVOCETIRIZINE DIHYDROCHLORIDE. [Suspect]
     Active Substance: LEVOCETIRIZINE DIHYDROCHLORIDE
     Indication: PREMEDICATION
     Route: 048
     Dates: start: 20181116, end: 20190222
  3. SOLUPRED (FRANCE) [Suspect]
     Active Substance: PREDNISOLONE SODIUM METAZOATE
     Indication: PROPHYLAXIS OF NAUSEA AND VOMITING
     Route: 048
     Dates: start: 20181116, end: 20190222
  4. TRASTUZUMAB. [Suspect]
     Active Substance: TRASTUZUMAB
     Indication: BREAST CANCER
     Route: 041
     Dates: start: 20181130
  5. CAPECITABINE. [Suspect]
     Active Substance: CAPECITABINE
     Indication: BREAST CANCER
     Dosage: DATE OF MOST RECENT DOSE: 22/FEB/2019
     Route: 048
     Dates: start: 20181130
  6. RANITIDINE. [Suspect]
     Active Substance: RANITIDINE
     Indication: PREMEDICATION
     Route: 048
     Dates: start: 20181116, end: 20190222

REACTIONS (1)
  - Type 2 diabetes mellitus [Recovered/Resolved with Sequelae]

NARRATIVE: CASE EVENT DATE: 201901
